FAERS Safety Report 4777516-1 (Version None)
Quarter: 2005Q3

REPORT INFORMATION
  Report Type: 
  Country: None (occurrence: None)
  Receive Date: 20050915
  Receipt Date: 20050901
  Transmission Date: 20060218
  Serious: Yes (Hospitalization)
  Sender: FDA-Public Use
  Company Number: 2005BI011434

PATIENT
  Age: 51 Year
  Sex: Female

DRUGS (3)
  1. AVONEX [Suspect]
     Indication: MULTIPLE SCLEROSIS
     Dosage: IM
     Route: 030
     Dates: start: 19970301, end: 20050101
  2. PROPRANOLOL [Concomitant]
  3. NEURONTIN [Concomitant]

REACTIONS (11)
  - ADVERSE DRUG REACTION [None]
  - ANTINUCLEAR ANTIBODY POSITIVE [None]
  - BONE DENSITY DECREASED [None]
  - DRUG HYPERSENSITIVITY [None]
  - DYSPHAGIA [None]
  - FATIGUE [None]
  - HAEMORRHAGE [None]
  - IDIOPATHIC THROMBOCYTOPENIC PURPURA [None]
  - PLATELET COUNT DECREASED [None]
  - SPLENOMEGALY [None]
  - THROMBOTIC THROMBOCYTOPENIC PURPURA [None]
